FAERS Safety Report 16956977 (Version 1)
Quarter: 2019Q4

REPORT INFORMATION
  Report Type: Spontaneous
  Country: SK (occurrence: SK)
  Receive Date: 20191024
  Receipt Date: 20191024
  Transmission Date: 20200122
  Serious: Yes (Death, Hospitalization, Other)
  Sender: FDA-Public Use
  Company Number: SK-GALDERMA-SK19061372

PATIENT
  Age: 47 Year
  Sex: Male

DRUGS (16)
  1. GEMCITABINE. [Concomitant]
     Active Substance: GEMCITABINE
     Indication: LYMPHOMA
  2. FLUCONAZOLE. [Concomitant]
     Active Substance: FLUCONAZOLE
     Indication: BACTERIAL INFECTION
  3. METRONIDAZOLE. [Suspect]
     Active Substance: METRONIDAZOLE
     Indication: NECROTISING FASCIITIS
     Route: 065
  4. COLIMYCINE [Concomitant]
     Indication: BACTERIAL INFECTION
  5. DEXAMETHASONE. [Concomitant]
     Active Substance: DEXAMETHASONE
     Indication: LYMPHOMA
     Dates: start: 20190424
  6. AMIKACIN. [Concomitant]
     Active Substance: AMIKACIN
     Indication: NECROTISING FASCIITIS
  7. FLUCONAZOLE. [Concomitant]
     Active Substance: FLUCONAZOLE
     Indication: NECROTISING FASCIITIS
     Dates: start: 20170419
  8. RITUXIMAB. [Concomitant]
     Active Substance: RITUXIMAB
     Indication: LYMPHOMA
  9. LOW MOLECULAR WEIGHT HEPARIN [Concomitant]
     Active Substance: UNSPECIFIED INGREDIENT
     Indication: NECROTISING FASCIITIS
  10. LINEZOLID. [Concomitant]
     Active Substance: LINEZOLID
     Indication: CELLULITIS
  11. BENDAMUSTINE [Concomitant]
     Active Substance: BENDAMUSTINE
     Indication: LYMPHOMA
  12. BISEPTOL [Concomitant]
     Active Substance: SULFAMETHOXAZOLE\TRIMETHOPRIM
     Indication: BACTERIAL INFECTION
  13. ZARZIO [Concomitant]
     Active Substance: FILGRASTIM
     Indication: NECROTISING FASCIITIS
  14. VANCOMYCIN [Concomitant]
     Active Substance: VANCOMYCIN
     Indication: ANTIBIOTIC THERAPY
  15. MEROPENEM. [Concomitant]
     Active Substance: MEROPENEM
     Indication: NECROTISING FASCIITIS
  16. CLINDAMYCIN PALMITATE HCL [Concomitant]
     Active Substance: CLINDAMYCIN PALMITATE HYDROCHLORIDE

REACTIONS (10)
  - Klebsiella infection [Unknown]
  - Enterococcal infection [Unknown]
  - Off label use [Recovered/Resolved]
  - Pseudomonas infection [Unknown]
  - Inflammation [Unknown]
  - Clostridium test positive [Unknown]
  - Septic shock [Fatal]
  - Sputum purulent [Unknown]
  - Anaemia [Unknown]
  - Organ failure [Unknown]

NARRATIVE: CASE EVENT DATE: 20161010
